FAERS Safety Report 9115536 (Version 1)
Quarter: 2013Q1

REPORT INFORMATION
  Report Type: Spontaneous
  Country: US (occurrence: None)
  Receive Date: 20130128
  Receipt Date: 20130128
  Transmission Date: 20140127
  Serious: Yes (Life-Threatening, Hospitalization)
  Sender: FDA-Public Use
  Company Number: 2013PL000014

PATIENT
  Age: 54 Year
  Sex: Male

DRUGS (30)
  1. PROLEUKIN [Suspect]
     Indication: CHRONIC GRAFT VERSUS HOST DISEASE
     Route: 058
     Dates: start: 20100219, end: 20100305
  2. CYCLOVIR [Concomitant]
  3. ANUSOL HC [Concomitant]
  4. ASPIRIN [Concomitant]
  5. BACTRIM [Concomitant]
  6. BACTROBAN /00753901/ [Concomitant]
  7. BIOTENE /03475601/ [Concomitant]
  8. CALCIUM + VIT D [Concomitant]
  9. COMPAZINE /00013302/ [Concomitant]
  10. DEXAMETHASONE [Concomitant]
  11. FLOMAX /00889901/ [Concomitant]
  12. GUAIFENESIN [Concomitant]
  13. HALOBETASOL PROPIONATE [Concomitant]
  14. INSULIN ASPART [Concomitant]
  15. INSULIN HM NPH [Concomitant]
  16. HUMULIN [Concomitant]
  17. KLOR-CON [Concomitant]
  18. LIDEX [Concomitant]
  19. LOMOTIL [Concomitant]
  20. MAGNESIUM PLUS PROTEIN [Concomitant]
  21. ONDANSETRON HCL [Concomitant]
  22. OXYCODONE [Concomitant]
  23. PREDNISONE [Concomitant]
  24. PROGRAF [Concomitant]
  25. PROTONIX [Concomitant]
  26. RAPAMUNE [Concomitant]
  27. RESTASIS [Concomitant]
  28. COLLAGENASE SANTYL [Concomitant]
  29. TRICOR /00090101/ [Concomitant]
  30. FOLIC ACID [Concomitant]

REACTIONS (10)
  - Chronic graft versus host disease [None]
  - Condition aggravated [None]
  - Nausea [None]
  - Vomiting [None]
  - Renal failure acute [None]
  - Haemolysis [None]
  - Hyperkalaemia [None]
  - Thrombocytopenia [None]
  - Thrombotic microangiopathy [None]
  - Haemolytic anaemia [None]
